FAERS Safety Report 5781546-0 (Version None)
Quarter: 2008Q2

REPORT INFORMATION
  Report Type: 
  Country: None (occurrence: None)
  Receive Date: 20080619
  Receipt Date: 20080613
  Transmission Date: 20081010
  Serious: Yes (Death)
  Sender: FDA-Public Use
  Company Number: 430040J08USA

PATIENT
  Age: 38 Year
  Sex: Female

DRUGS (3)
  1. NOVANTRONE [Suspect]
     Indication: MULTIPLE SCLEROSIS
     Dates: start: 20080530, end: 20080530
  2. REBIF [Suspect]
     Indication: MULTIPLE SCLEROSIS
     Dosage: 44 MCG, 3 IN 1 WEEKS, SUBCUTANEOUS
     Route: 058
     Dates: start: 20060619, end: 20080501
  3. DEXAMETHASONE [Suspect]
     Dates: start: 20080530, end: 20080101

REACTIONS (5)
  - ABDOMINAL PAIN UPPER [None]
  - APNOEA [None]
  - BACK PAIN [None]
  - FALL [None]
  - FEELING HOT [None]
